FAERS Safety Report 12269714 (Version 2)
Quarter: 2016Q2

REPORT INFORMATION
  Report Type: Spontaneous
  Country: GB (occurrence: GB)
  Receive Date: 20160414
  Receipt Date: 20160526
  Transmission Date: 20160815
  Serious: Yes (Hospitalization, Other)
  Sender: FDA-Public Use
  Company Number: GB-AMGEN-GBRSP2016019589

PATIENT
  Age: 54 Year
  Sex: Female

DRUGS (6)
  1. HERCEPTIN [Concomitant]
     Active Substance: TRASTUZUMAB
     Dosage: 600 MG, UNK
     Route: 058
  2. GRANISETRON [Concomitant]
     Active Substance: GRANISETRON
     Dosage: UNK
  3. GEMCITABINE [Concomitant]
     Active Substance: GEMCITABINE\GEMCITABINE HYDROCHLORIDE
     Dosage: UNK
  4. NEULASTA [Suspect]
     Active Substance: PEGFILGRASTIM
     Indication: PRODUCT USED FOR UNKNOWN INDICATION
     Dosage: UNK
     Route: 065
  5. CARBOPLATIN. [Concomitant]
     Active Substance: CARBOPLATIN
     Dosage: UNK
  6. DEXAMETHASONE. [Concomitant]
     Active Substance: DEXAMETHASONE
     Dosage: UNK

REACTIONS (15)
  - Diarrhoea [Recovering/Resolving]
  - Nausea [Recovering/Resolving]
  - Breast cancer metastatic [Unknown]
  - Dysphonia [Unknown]
  - Fatigue [Unknown]
  - Lymphadenopathy [Unknown]
  - Pain in extremity [Unknown]
  - Anaemia [Unknown]
  - Wound [Recovering/Resolving]
  - Musculoskeletal disorder [Unknown]
  - Vomiting [Unknown]
  - Sensory loss [Unknown]
  - Pyrexia [Unknown]
  - Oedema [Unknown]
  - Constipation [Unknown]

NARRATIVE: CASE EVENT DATE: 20160518
